FAERS Safety Report 23446874 (Version 1)
Quarter: 2024Q1

REPORT INFORMATION
  Report Type: Spontaneous
  Country: US (occurrence: US)
  Receive Date: 20240126
  Receipt Date: 20240126
  Transmission Date: 20240410
  Serious: Yes (Other)
  Sender: FDA-Public Use
  Company Number: US-ANIPHARMA-2024-US-004582

PATIENT
  Sex: Female

DRUGS (18)
  1. PROPRANOLOL HYDROCHLORIDE [Suspect]
     Active Substance: PROPRANOLOL HYDROCHLORIDE
     Indication: Product used for unknown indication
     Route: 065
  2. MONTELUKAST [Concomitant]
     Active Substance: MONTELUKAST SODIUM
     Route: 065
  3. NALTREXONE [Concomitant]
     Active Substance: NALTREXONE
     Route: 065
  4. OTREXUP [Concomitant]
     Active Substance: METHOTREXATE
     Route: 065
  5. PEPCID [Concomitant]
     Active Substance: FAMOTIDINE
     Route: 065
  6. QUERCETIN [Concomitant]
     Active Substance: QUERCETIN
     Route: 065
  7. XYZAL ALLERGY 24HR [Concomitant]
     Active Substance: LEVOCETIRIZINE DIHYDROCHLORIDE
     Route: 065
  8. VITAMIN C [Concomitant]
     Active Substance: ASCORBIC ACID
     Route: 065
  9. TRETINOIN [Concomitant]
     Active Substance: TRETINOIN
     Route: 061
  10. EPIPEN [Concomitant]
     Active Substance: EPINEPHRINE
     Route: 065
  11. AVAPRITINIB [Suspect]
     Active Substance: AVAPRITINIB
     Dosage: 2  MG ( 25 MG, 1 IN 1 D); 100 MG
     Route: 048
  12. XOLAIR [Concomitant]
     Active Substance: OMALIZUMAB
     Dosage: 42.8571 MG (300 MG,1 IN 1 WK)
     Route: 065
  13. BENADRYL ALLERGY [Concomitant]
     Active Substance: DIPHENHYDRAMINE HYDROCHLORIDE
     Route: 065
  14. CHLORPHENIRAMINE [Concomitant]
     Active Substance: CHLORPHENIRAMINE
     Route: 065
  15. CLARITIN [Concomitant]
     Active Substance: LORATADINE
     Route: 065
  16. CROMOLYN [Concomitant]
     Active Substance: CROMOLYN
     Route: 065
  17. FOLIC ACID [Concomitant]
     Active Substance: FOLIC ACID
     Route: 065
  18. KETOTIFEN [Concomitant]
     Active Substance: KETOTIFEN
     Route: 065

REACTIONS (19)
  - Hysterectomy [Unknown]
  - Activated partial thromboplastin time prolonged [Not Recovered/Not Resolved]
  - Rash [Unknown]
  - Hyperhidrosis [Unknown]
  - Urticaria [Not Recovered/Not Resolved]
  - Dizziness [Not Recovered/Not Resolved]
  - Platelet count increased [Not Recovered/Not Resolved]
  - Blood immunoglobulin E increased [Not Recovered/Not Resolved]
  - Dyschromatopsia [Recovered/Resolved]
  - Alopecia [Not Recovered/Not Resolved]
  - Drug interaction [Unknown]
  - Thrombosis [Unknown]
  - Swelling [Recovering/Resolving]
  - Diarrhoea [Recovered/Resolved]
  - Fatigue [Recovering/Resolving]
  - Peripheral swelling [Recovered/Resolved]
  - Swelling face [Recovered/Resolved]
  - Eye swelling [Recovered/Resolved]
  - Somnolence [Unknown]
